FAERS Safety Report 25422077 (Version 2)
Quarter: 2025Q2

REPORT INFORMATION
  Report Type: Spontaneous
  Country: TR (occurrence: TR)
  Receive Date: 20250611
  Receipt Date: 20250624
  Transmission Date: 20250716
  Serious: Yes (Death)
  Sender: CSL BEHRING
  Company Number: TR-BEH-2025208868

PATIENT
  Sex: Female
  Weight: 2.435 kg

DRUGS (2)
  1. HUMAN IMMUNOGLOBULIN G [Suspect]
     Active Substance: HUMAN IMMUNOGLOBULIN G
     Indication: Rhesus haemolytic disease of newborn
     Route: 042
  2. HUMAN IMMUNOGLOBULIN G [Suspect]
     Active Substance: HUMAN IMMUNOGLOBULIN G
     Indication: Haemolytic anaemia

REACTIONS (5)
  - Necrotising colitis [Fatal]
  - Infantile vomiting [Unknown]
  - Abdominal distension [Unknown]
  - Pneumatosis intestinalis [Unknown]
  - Off label use [Unknown]
